FAERS Safety Report 9084457 (Version 1)
Quarter: 2013Q1

REPORT INFORMATION
  Report Type: Spontaneous
  Country: US (occurrence: US)
  Receive Date: 20130131
  Receipt Date: 20130131
  Transmission Date: 20140127
  Serious: No
  Sender: FDA-Public Use
  Company Number: US-PFIZER INC-2013030631

PATIENT
  Sex: Male

DRUGS (2)
  1. ZYVOX [Suspect]
     Dosage: UNK
     Route: 048
  2. ZYVOX [Concomitant]
     Dosage: UNK
     Route: 042
     Dates: end: 20130122

REACTIONS (1)
  - Rash [Unknown]
